FAERS Safety Report 14019158 (Version 4)
Quarter: 2017Q4

REPORT INFORMATION
  Report Type: Report from Study
  Country: LB (occurrence: LB)
  Receive Date: 20170928
  Receipt Date: 20171029
  Transmission Date: 20180321
  Serious: Yes (Death, Hospitalization)
  Sender: FDA-Public Use
  Company Number: PHHY2017LB141961

PATIENT
  Age: 85 Year
  Sex: Male

DRUGS (1)
  1. EXJADE [Suspect]
     Active Substance: DEFERASIROX
     Indication: MYELODYSPLASTIC SYNDROME
     Dosage: 1500 MG, QD (3 TABS 500MG DAILY)
     Route: 048
     Dates: end: 20170831

REACTIONS (5)
  - Pain [Unknown]
  - Dyspnoea [Fatal]
  - Serum ferritin increased [Unknown]
  - Cardiac arrest [Fatal]
  - Osteomyelitis [Unknown]

NARRATIVE: CASE EVENT DATE: 20170831
